FAERS Safety Report 10384329 (Version 1)
Quarter: 2014Q3

REPORT INFORMATION
  Report Type: Report from Study
  Country: US (occurrence: US)
  Receive Date: 20140814
  Receipt Date: 20140814
  Transmission Date: 20150326
  Serious: Yes (Hospitalization)
  Sender: FDA-Public Use
  Company Number: US-EISAI INC-E2B_00000000010092

PATIENT
  Age: 66 Year
  Sex: Male
  Weight: 105.7 kg

DRUGS (2)
  1. LORCASERIN HYDROCHLORIDE [Suspect]
     Active Substance: LORCASERIN HYDROCHLORIDE
     Indication: WEIGHT CONTROL
     Dosage: DOUBLE-BLIND
     Route: 048
     Dates: start: 20140804, end: 20140806
  2. ASPIRIN. [Concomitant]
     Active Substance: ASPIRIN
     Dosage: 81-MG-ONCE A DAY
     Route: 048
     Dates: start: 201201

REACTIONS (1)
  - Syncope [Unknown]

NARRATIVE: CASE EVENT DATE: 20140806
